FAERS Safety Report 24440690 (Version 2)
Quarter: 2024Q4

REPORT INFORMATION
  Report Type: Report from Study
  Country: US (occurrence: US)
  Receive Date: 20241016
  Receipt Date: 20241017
  Transmission Date: 20250115
  Serious: No
  Sender: ROCHE
  Company Number: US-ROCHE-3068053

PATIENT
  Age: 80 Year
  Sex: Male

DRUGS (4)
  1. HEMLIBRA [Suspect]
     Active Substance: EMICIZUMAB-KXWH
     Indication: Haemorrhagic disorder
     Dosage: 600 MG (OF 150 MG/ML) ONCE 28 DAYS FOR 4 WEEKS
     Route: 058
  2. HEMLIBRA [Suspect]
     Active Substance: EMICIZUMAB-KXWH
     Indication: Haemorrhagic diathesis
  3. HEMLIBRA [Suspect]
     Active Substance: EMICIZUMAB-KXWH
     Indication: Coagulopathy
  4. PENICILLIN V POTASSIUM [Concomitant]
     Active Substance: PENICILLIN V POTASSIUM

REACTIONS (2)
  - Off label use [Unknown]
  - Haemorrhage [Unknown]
